FAERS Safety Report 6655334-7 (Version None)
Quarter: 2010Q1

REPORT INFORMATION
  Report Type: 
  Country: None (occurrence: None)
  Receive Date: 20100329
  Receipt Date: 20100317
  Transmission Date: 20100710
  Serious: Yes (Hospitalization, Other)
  Sender: FDA-Public Use
  Company Number: PHHY2010GB08836

PATIENT
  Sex: Female

DRUGS (4)
  1. CLOZARIL [Suspect]
     Indication: SCHIZOPHRENIA
     Dosage: 225 MG, UNK
     Route: 048
     Dates: start: 20080218, end: 20100209
  2. CHLORPROMAZINE [Concomitant]
     Indication: SCHIZOPHRENIA
     Dosage: 25 MG, UNK
     Route: 048
  3. GABAPENTIN [Concomitant]
     Dosage: 1 MG, TID
  4. TRAMADONE [Concomitant]
     Indication: DEPRESSION
     Dosage: 300 MG, UNK
     Route: 048

REACTIONS (5)
  - AGRANULOCYTOSIS [None]
  - LOWER RESPIRATORY TRACT INFECTION [None]
  - NEUTROPENIC SEPSIS [None]
  - NEUTROPHIL COUNT DECREASED [None]
  - RESPIRATORY DISORDER [None]
